FAERS Safety Report 25241749 (Version 1)
Quarter: 2025Q2

REPORT INFORMATION
  Report Type: Spontaneous
  Country: IT (occurrence: IT)
  Receive Date: 20250426
  Receipt Date: 20250426
  Transmission Date: 20250716
  Serious: Yes (Death, Hospitalization)
  Sender: MERCK SHARP & DOHME LLC
  Company Number: None

PATIENT
  Age: 61 Year
  Sex: Female

DRUGS (4)
  1. KEYTRUDA [Suspect]
     Active Substance: PEMBROLIZUMAB
     Indication: Lung carcinoma cell type unspecified stage IV
     Dosage: 200 MG EVERY 21 DAYS
     Route: 042
     Dates: start: 20250206, end: 20250206
  2. CARBOPLATIN [Suspect]
     Active Substance: CARBOPLATIN
     Indication: Lung carcinoma cell type unspecified stage IV
     Route: 042
     Dates: start: 20250206, end: 20250206
  3. DEXAMETHASONE [Concomitant]
     Active Substance: DEXAMETHASONE
     Indication: Metastases to central nervous system
     Route: 048
     Dates: start: 20241205, end: 20250209
  4. PEMETREXED [Suspect]
     Active Substance: PEMETREXED
     Indication: Lung carcinoma cell type unspecified stage IV
     Dosage: 500 MG/M2 EVERY 21 DAYS
     Route: 042
     Dates: start: 20250206, end: 20250206

REACTIONS (7)
  - Febrile neutropenia [Fatal]
  - Clostridium difficile colitis [Fatal]
  - Arterial thrombosis [Fatal]
  - Pneumonia [Fatal]
  - Sepsis [Fatal]
  - Bacterial pyelonephritis [Fatal]
  - Renal ischaemia [Fatal]

NARRATIVE: CASE EVENT DATE: 20250209
